FAERS Safety Report 17153578 (Version 2)
Quarter: 2021Q4

REPORT INFORMATION
  Report Type: Spontaneous
  Country: US (occurrence: US)
  Receive Date: 20191213
  Receipt Date: 20211216
  Transmission Date: 20220303
  Serious: No
  Sender: FDA-Public Use
  Company Number: US-ENDO PHARMACEUTICALS INC-2019-103259

PATIENT
  Sex: Male
  Weight: 83.9 kg

DRUGS (6)
  1. TESTIM [Suspect]
     Active Substance: TESTOSTERONE
     Indication: Blood testosterone decreased
     Dosage: UNK UNKNOWN, ONE TUBE DAILY
     Route: 061
     Dates: start: 1999
  2. TESTIM [Suspect]
     Active Substance: TESTOSTERONE
     Indication: Testis cancer
     Dosage: UNK UNKNOWN, TWO TUBES DAILY
     Route: 061
     Dates: start: 2016
  3. TESTIM [Suspect]
     Active Substance: TESTOSTERONE
     Dosage: UNK UNKNOWN, ONE AND ONE HALF TUBES DAILY
     Route: 061
     Dates: start: 2018
  4. ALLOPURINOL [Concomitant]
     Active Substance: ALLOPURINOL
     Indication: Blood uric acid
     Dosage: 150 MG, DAILY
  5. IRON [Concomitant]
     Active Substance: IRON
     Indication: Blood iron decreased
  6. SIMVASTATIN [Concomitant]
     Active Substance: SIMVASTATIN
     Indication: Product used for unknown indication
     Dosage: 20 MG, DAILY

REACTIONS (9)
  - Sluggishness [Unknown]
  - Off label use [Unknown]
  - Blood iron abnormal [Recovered/Resolved]
  - Limb discomfort [Unknown]
  - Blood testosterone decreased [Not Recovered/Not Resolved]
  - Red blood cell count increased [Recovered/Resolved]
  - Haemoglobin increased [Unknown]
  - Libido decreased [Unknown]
  - Headache [Unknown]

NARRATIVE: CASE EVENT DATE: 20140101
